FAERS Safety Report 7395279-0 (Version None)
Quarter: 2011Q2

REPORT INFORMATION
  Report Type: 
  Country: None (occurrence: None)
  Receive Date: 20110405
  Receipt Date: 20110330
  Transmission Date: 20111010
  Serious: Yes (Life-Threatening, Hospitalization)
  Sender: FDA-Public Use
  Company Number: CH-PFIZER INC-CH-WYE-G06429710

PATIENT
  Age: 69 Year
  Sex: Male

DRUGS (14)
  1. HALDOL [Suspect]
     Dosage: CUMULATIVE DOSE OF 8 MG GIVEN WITHIN 24 HOURS BETWEEN THE 28 AND THE 29-MAR-2010 (ORAL AND I.V.)
  2. NOPIL [Concomitant]
     Dosage: 80/400 MG 3 TIMES WEEKLY
     Route: 048
  3. BUPRENORPHINE [Concomitant]
     Dosage: 0.2 MG, 1X/DAY
     Route: 048
  4. PROGRAF [Concomitant]
     Dosage: 3 MG, 2X/DAY
     Route: 048
  5. REMERON [Interacting]
     Indication: DEPRESSION
     Dosage: 30 MG, 2X/DAY
     Route: 048
     Dates: end: 20100328
  6. SEROQUEL [Suspect]
     Dosage: BETWEEN THE 28 AND 29-MAR-2010 CUMULATIVE DOSE OF 30 MG WITHIN 24 HOURS
     Route: 048
  7. DAFALGAN [Concomitant]
     Dosage: 1 G, 4X/DAY
     Route: 048
  8. PREDNISONE [Concomitant]
     Dosage: 35 MG, 1X/DAY
     Route: 048
  9. EFFEXOR [Interacting]
     Indication: DEPRESSION
     Dosage: 75 MG, 1X/DAY
     Route: 048
     Dates: end: 20100330
  10. CELLCEPT [Concomitant]
     Dosage: 1000 MG, 2X/DAY
     Route: 048
  11. ZYLORIC [Concomitant]
     Dosage: 100 MG, 1X/DAY
     Route: 048
  12. NORVASC [Concomitant]
     Dosage: 5 MG, 2X/DAY
     Route: 048
  13. AMPHOTERICIN B [Concomitant]
     Dosage: 10 MG, 4X/DAY
     Route: 048
  14. PANTOZOL [Concomitant]
     Dosage: 20 MG, 2X/DAY
     Route: 048

REACTIONS (6)
  - SEROTONIN SYNDROME [None]
  - NEUROLEPTIC MALIGNANT SYNDROME [None]
  - DELIRIUM [None]
  - MYOCLONUS [None]
  - DRUG INTERACTION [None]
  - HYPOKINESIA [None]
